FAERS Safety Report 7286078-9 (Version None)
Quarter: 2011Q1

REPORT INFORMATION
  Report Type: 
  Country: None (occurrence: None)
  Receive Date: 20110210
  Receipt Date: 20110202
  Transmission Date: 20110831
  Serious: Yes (Other)
  Sender: FDA-Public Use
  Company Number: DK-PFIZER INC-2010138834

PATIENT
  Age: 76 Year
  Sex: Female

DRUGS (6)
  1. APOZEPAM [Concomitant]
     Indication: RESTLESSNESS
     Dosage: UNK
     Dates: start: 20060724
  2. BRICANYL [Concomitant]
     Indication: ASTHMA
     Dosage: UNK
     Dates: start: 20020701
  3. CELECOXIB [Suspect]
     Indication: OSTEOARTHRITIS
     Dosage: 100 MG, AS NEEDED
     Route: 048
     Dates: start: 20100526, end: 20100809
  4. IBUPROFEN [Concomitant]
     Indication: PAIN
     Dosage: UNK
     Dates: start: 20100810
  5. CENTYL MED KALIUMKLORID [Concomitant]
     Indication: HYPERTENSION
     Dosage: UNK
     Dates: start: 20051111
  6. ZANIDIP [Concomitant]
     Indication: HYPERTENSION
     Dosage: UNK
     Dates: start: 20080115

REACTIONS (1)
  - PULMONARY CONGESTION [None]
